FAERS Safety Report 6322139-6 (Version None)
Quarter: 2009Q3

REPORT INFORMATION
  Report Type: 
  Country: None (occurrence: None)
  Receive Date: 20090821
  Receipt Date: 20090821
  Transmission Date: 20100115
  Serious: Yes (Other)
  Sender: FDA-Public Use
  Company Number: None

PATIENT
  Age: 67 Year
  Sex: Female
  Weight: 99.7913 kg

DRUGS (1)
  1. DILTIAZEM [Suspect]
     Indication: HEART RATE IRREGULAR
     Dosage: 1 DAILY PO
     Route: 048
     Dates: start: 20090711, end: 20090713

REACTIONS (3)
  - BRADYCARDIA [None]
  - PRODUCT SUBSTITUTION ISSUE [None]
  - TACHYCARDIA [None]
